FAERS Safety Report 5451660-8 (Version None)
Quarter: 2007Q3

REPORT INFORMATION
  Report Type: 
  Country: None (occurrence: None)
  Receive Date: 20070913
  Receipt Date: 20070902
  Transmission Date: 20080115
  Serious: Yes (Other)
  Sender: FDA-Public Use
  Company Number: US-PFIZER INC-2007073380

PATIENT
  Sex: Male
  Weight: 72.727 kg

DRUGS (5)
  1. CHANTIX [Suspect]
     Indication: SMOKING CESSATION THERAPY
     Dates: start: 20070510, end: 20070614
  2. ZOLOFT [Concomitant]
  3. ABILIFY [Concomitant]
  4. KLONOPIN [Concomitant]
  5. VITAMINS [Concomitant]

REACTIONS (4)
  - AGGRESSION [None]
  - ANXIETY [None]
  - EUPHORIC MOOD [None]
  - PSYCHOTIC DISORDER [None]
